FAERS Safety Report 14855951 (Version 10)
Quarter: 2019Q1

REPORT INFORMATION
  Report Type: Report from Study
  Country: US (occurrence: US)
  Receive Date: 20180507
  Receipt Date: 20190227
  Transmission Date: 20190417
  Serious: Yes (Hospitalization)
  Sender: FDA-Public Use
  Company Number: US-ACTELION-A-US2018-165309

PATIENT
  Age: 63 Year
  Sex: Female
  Weight: 108.39 kg

DRUGS (21)
  1. STOOL SOFTENER (DOCUSATE) [Concomitant]
     Active Substance: DOCUSATE
  2. OMEPRAZOLE. [Concomitant]
     Active Substance: OMEPRAZOLE
  3. UPTRAVI [Suspect]
     Active Substance: SELEXIPAG
     Dosage: 1400 MCG, BID
     Route: 048
  4. JAKAFI [Concomitant]
     Active Substance: RUXOLITINIB
     Dosage: UNK, BID
  5. VITAMIN D3 [Concomitant]
     Active Substance: CHOLECALCIFEROL
  6. OPSUMIT [Suspect]
     Active Substance: MACITENTAN
     Indication: PULMONARY ARTERIAL HYPERTENSION
     Dosage: 10 MG, QD
     Route: 048
     Dates: start: 20160129
  7. UPTRAVI [Suspect]
     Active Substance: SELEXIPAG
     Dosage: 1200 MCG, BID
     Route: 048
  8. TRAMADOL. [Concomitant]
     Active Substance: TRAMADOL
  9. FUROSEMIDE. [Concomitant]
     Active Substance: FUROSEMIDE
  10. PENTOXIFYLLIN [Concomitant]
     Active Substance: PENTOXIFYLLINE
  11. JANUVIA [Concomitant]
     Active Substance: SITAGLIPTIN PHOSPHATE
  12. ASPIRIN 81 [Concomitant]
     Active Substance: ASPIRIN
  13. JAKAFI [Concomitant]
     Active Substance: RUXOLITINIB
     Dosage: UNK, QD
  14. OXYGEN. [Concomitant]
     Active Substance: OXYGEN
     Dosage: 4-5
  15. SPIRONOLACTONE. [Concomitant]
     Active Substance: SPIRONOLACTONE
  16. K-TAB [Concomitant]
     Active Substance: POTASSIUM CHLORIDE
  17. SERTRALINE [Concomitant]
     Active Substance: SERTRALINE HYDROCHLORIDE
  18. UPTRAVI [Suspect]
     Active Substance: SELEXIPAG
     Indication: PULMONARY ARTERIAL HYPERTENSION
     Dosage: 800 MCG, BID
     Route: 048
  19. ADEMPAS [Concomitant]
     Active Substance: RIOCIGUAT
  20. WARFARIN [Concomitant]
     Active Substance: WARFARIN
  21. OXYGEN. [Concomitant]
     Active Substance: OXYGEN
     Dosage: 5 L, UNK

REACTIONS (20)
  - Nasal congestion [Unknown]
  - Feeling cold [Unknown]
  - Oxygen consumption increased [Unknown]
  - Malaise [Unknown]
  - Cholecystectomy [Recovered/Resolved]
  - Cough [Unknown]
  - Asthenia [Unknown]
  - Cyst removal [Unknown]
  - Influenza [Unknown]
  - Dyspnoea [Unknown]
  - Urinary tract infection [Recovered/Resolved]
  - Nasopharyngitis [Unknown]
  - Rhinorrhoea [Unknown]
  - Pneumonia [Unknown]
  - Head discomfort [Unknown]
  - Rash [Unknown]
  - Productive cough [Unknown]
  - Abdominal discomfort [Unknown]
  - Pruritus [Not Recovered/Not Resolved]
  - Headache [Unknown]

NARRATIVE: CASE EVENT DATE: 201804
